FAERS Safety Report 16954586 (Version 3)
Quarter: 2019Q4

REPORT INFORMATION
  Report Type: Report from Study
  Country: JP (occurrence: JP)
  Receive Date: 20191024
  Receipt Date: 20191230
  Transmission Date: 20200122
  Serious: Yes (Other)
  Sender: FDA-Public Use
  Company Number: JP-BEH-2019102398

PATIENT
  Age: 62 Year
  Sex: Male
  Weight: 60.2 kg

DRUGS (36)
  1. BERIPLEX P/N [Suspect]
     Active Substance: COAGULATION FACTOR IX HUMAN\COAGULATION FACTOR VII HUMAN\COAGULATION FACTOR X HUMAN\PROTEIN C\PROTEIN S HUMAN\PROTHROMBIN
     Indication: CARDIAC OPERATION
     Dosage: ADMINISTERED BEFORE SURGERY
     Route: 065
  2. AMLODIPINE BESILATE [Concomitant]
     Active Substance: AMLODIPINE BESYLATE
     Dosage: UNK
     Route: 048
     Dates: start: 20180421
  3. HEPARIN [Concomitant]
     Active Substance: HEPARIN SODIUM
     Dosage: 25 MILLILITER
     Route: 065
     Dates: start: 20180419
  4. POTASSIUM CHLORIDE. [Concomitant]
     Active Substance: POTASSIUM CHLORIDE
     Dosage: ADMINISTERED AFTER SURGERY AT ICU
     Route: 065
     Dates: start: 20180419, end: 20180420
  5. KAYTWO [Concomitant]
     Active Substance: MENATETRENONE
     Indication: PROCOAGULANT THERAPY
     Dosage: 20 MILLIGRAM
     Dates: start: 20180420, end: 20180420
  6. FENTANYL CITRATE. [Concomitant]
     Active Substance: FENTANYL CITRATE
     Dosage: 25 MILLILITER, INTRAOPERATIVE ADMINISTRATION
     Route: 065
     Dates: start: 20180419
  7. CEFAZOLIN NA [Concomitant]
     Active Substance: CEFAZOLIN SODIUM
     Dosage: 3 GRAM (1G X 3 TIMES), ADMINISTERED AFTER SURGERY AT ICU
     Route: 065
     Dates: start: 20180419, end: 20180421
  8. FAMOTIDINE. [Concomitant]
     Active Substance: FAMOTIDINE
     Dosage: 40 MILLIGRAM (20MG 2 TIMES), ADMINISTERED AFTER SURGERY AT ICU
     Route: 065
     Dates: start: 20180419, end: 20180421
  9. HUMULIN R [Concomitant]
     Active Substance: INSULIN HUMAN
     Dosage: ADMINISTERED AFTER SURGERY AT ICU
     Route: 065
     Dates: start: 20180419, end: 20180423
  10. MAINTATE [Concomitant]
     Active Substance: BISOPROLOL FUMARATE
     Dosage: UNK
     Route: 048
     Dates: start: 20180421
  11. BERIPLEX P/N [Suspect]
     Active Substance: COAGULATION FACTOR IX HUMAN\COAGULATION FACTOR VII HUMAN\COAGULATION FACTOR X HUMAN\PROTEIN C\PROTEIN S HUMAN\PROTHROMBIN
     Indication: SURGERY
     Dosage: 1000IU ADMINISTERED THREE HOURS AFTER SURGERY AT ICU
     Route: 042
     Dates: start: 20180420
  12. BERIPLEX P/N [Suspect]
     Active Substance: COAGULATION FACTOR IX HUMAN\COAGULATION FACTOR VII HUMAN\COAGULATION FACTOR X HUMAN\PROTEIN C\PROTEIN S HUMAN\PROTHROMBIN
     Indication: CARDIAC OPERATION
     Dosage: ADMINISTERED BEFORE SURGERY
     Route: 065
  13. EPHEDRIN [Concomitant]
     Active Substance: EPHEDRINE HYDROCHLORIDE
     Dosage: 0.4 VIAL, ADMINISTERED DURING SURGERY
     Dates: start: 20180419
  14. DOBUPUM [Concomitant]
     Active Substance: DOBUTAMINE HYDROCHLORIDE
     Dosage: ADMINISTERED AFTER SURGERY AT ICU
     Route: 065
     Dates: start: 20180419, end: 20180423
  15. PROTAMINE [Concomitant]
     Active Substance: PROTAMINE
     Dosage: 20 MILLILITER, ADMINISTERED DURING SURGERY
     Route: 065
     Dates: start: 20180419
  16. PROPOFOL. [Concomitant]
     Active Substance: PROPOFOL
     Dosage: ADMINISTERED AFTER SURGERY AT ICU (CONTINUOUS ADMINISTRATION)
     Route: 065
     Dates: start: 20180419, end: 20180420
  17. FUROSEMIDE. [Concomitant]
     Active Substance: FUROSEMIDE
     Dosage: UNK
     Route: 048
     Dates: start: 20180421
  18. NICARDIPINE HYDROCHLORIDE. [Concomitant]
     Active Substance: NICARDIPINE HYDROCHLORIDE
     Dosage: 2.5 MILLIGRAM, ADMINISTERED AFTER SURGERY AT ICU
     Route: 065
     Dates: start: 20180419, end: 20180423
  19. INOVAN [DOPAMINE HYDROCHLORIDE] [Concomitant]
     Dosage: ADMINISTERED AFTER SURGERY AT ICU
     Route: 065
     Dates: start: 20180419, end: 20180421
  20. PRECEDEX [Concomitant]
     Active Substance: DEXMEDETOMIDINE HYDROCHLORIDE
     Dosage: ADMINISTERED AFTER SURGERY AT ICU
     Route: 065
     Dates: start: 20180419, end: 20180419
  21. TAKECAB [Concomitant]
     Active Substance: VONOPRAZAN FUMURATE
     Dosage: UNK
     Route: 048
     Dates: start: 20180421
  22. TELMISARTAN. [Concomitant]
     Active Substance: TELMISARTAN
     Dosage: UNK
     Route: 048
     Dates: start: 20180421
  23. CELECOX [Concomitant]
     Active Substance: CELECOXIB
     Dosage: UNK
     Route: 048
     Dates: start: 20180421, end: 20180727
  24. BERIPLEX P/N [Suspect]
     Active Substance: COAGULATION FACTOR IX HUMAN\COAGULATION FACTOR VII HUMAN\COAGULATION FACTOR X HUMAN\PROTEIN C\PROTEIN S HUMAN\PROTHROMBIN
     Indication: HAEMORRHAGIC DIATHESIS
     Dosage: UNK
     Route: 042
  25. BERIPLEX P/N [Suspect]
     Active Substance: COAGULATION FACTOR IX HUMAN\COAGULATION FACTOR VII HUMAN\COAGULATION FACTOR X HUMAN\PROTEIN C\PROTEIN S HUMAN\PROTHROMBIN
     Indication: HAEMORRHAGIC DIATHESIS
     Dosage: UNK
     Route: 042
  26. DAIKENCHUTO [Concomitant]
     Active Substance: HERBALS
     Dosage: UNK
     Route: 048
     Dates: end: 20180423
  27. TRANEXAMIC ACID. [Concomitant]
     Active Substance: TRANEXAMIC ACID
     Dosage: 18.7 MILLILITER, ADMINISTERED DURING SURGERY
     Route: 065
     Dates: start: 20180419
  28. ROCURONIUM BROMIDE. [Concomitant]
     Active Substance: ROCURONIUM BROMIDE
     Dosage: 192 MILLIGRAM, ADMINISTERED DURING SURGERY
     Route: 065
     Dates: start: 20180419
  29. DOBUPUM [Concomitant]
     Active Substance: DOBUTAMINE HYDROCHLORIDE
     Dosage: 22661 MICROGRAM, ADMINISTERED DURING SURGERY
     Route: 065
     Dates: start: 20180419
  30. BERIPLEX P/N [Suspect]
     Active Substance: COAGULATION FACTOR IX HUMAN\COAGULATION FACTOR VII HUMAN\COAGULATION FACTOR X HUMAN\PROTEIN C\PROTEIN S HUMAN\PROTHROMBIN
     Indication: SURGERY
     Dosage: 1000IU ADMINISTERED THREE HOURS AFTER SURGERY AT ICU
     Route: 042
     Dates: start: 20180420
  31. KAYTWO [Concomitant]
     Active Substance: MENATETRENONE
     Dosage: 10 MILLIGRAM, SINGLE
     Dates: start: 20180420, end: 20180420
  32. FENTANYL CITRATE. [Concomitant]
     Active Substance: FENTANYL CITRATE
     Dosage: ADMINISTERED AFTER SURGERY AT ICU
     Route: 065
     Dates: start: 20180419, end: 20180420
  33. NORADRENALINE [NOREPINEPHRINE] [Concomitant]
     Active Substance: NOREPINEPHRINE
     Dosage: 173 MICROGRAM, ADMINISTERED DURING SURGERY
     Route: 065
     Dates: start: 20180419
  34. TRANEXAMIC ACID. [Concomitant]
     Active Substance: TRANEXAMIC ACID
     Dosage: 18.7 MILLILITER, ADMINISTERED AFTER SURGERY AT ICU
     Route: 065
     Dates: start: 20180419, end: 20180423
  35. NICARDIPINE HYDROCHLORIDE. [Concomitant]
     Active Substance: NICARDIPINE HYDROCHLORIDE
     Dosage: 2.5 MILLIGRAM, ADMINISTERED DURING SURGERY
     Route: 065
     Dates: start: 20180419
  36. REMIFENTANIL [Concomitant]
     Active Substance: REMIFENTANIL
     Dosage: 46 MILLILITER, ADMINISTERED DURING SURGERY
     Route: 065
     Dates: start: 20180419

REACTIONS (2)
  - Lacunar infarction [Recovered/Resolved]
  - Extradural haematoma [Recovered/Resolved]

NARRATIVE: CASE EVENT DATE: 20180422
